FAERS Safety Report 11593506 (Version 1)
Quarter: 2015Q4

REPORT INFORMATION
  Report Type: Report from Study
  Country: PL (occurrence: PL)
  Receive Date: 20151005
  Receipt Date: 20151005
  Transmission Date: 20160304
  Serious: Yes (Death, Life-Threatening, Hospitalization)
  Sender: FDA-Public Use
  Company Number: PL-JNJFOC-20151000704

PATIENT
  Age: 68 Year
  Sex: Female
  Weight: 68 kg

DRUGS (1)
  1. IBRUTINIB [Suspect]
     Active Substance: IBRUTINIB
     Indication: CHRONIC LYMPHOCYTIC LEUKAEMIA
     Route: 048
     Dates: start: 201504, end: 20150914

REACTIONS (12)
  - Hypercalcaemia [Fatal]
  - Liver injury [Fatal]
  - Vomiting [Unknown]
  - Meningeal disorder [Fatal]
  - Blood electrolytes abnormal [Unknown]
  - Escherichia infection [Unknown]
  - Hyperuricaemia [Fatal]
  - Altered state of consciousness [Unknown]
  - Diarrhoea [Unknown]
  - Pneumonia [Unknown]
  - Altered state of consciousness [Fatal]
  - Infection [Fatal]

NARRATIVE: CASE EVENT DATE: 201509
